FAERS Safety Report 24393870 (Version 1)
Quarter: 2024Q4

REPORT INFORMATION
  Report Type: Spontaneous
  Country: PL (occurrence: PL)
  Receive Date: 20241003
  Receipt Date: 20241003
  Transmission Date: 20250115
  Serious: Yes (Hospitalization, Other)
  Sender: INSUD PHARMA
  Company Number: None

PATIENT
  Age: 31 Year
  Sex: Male

DRUGS (22)
  1. OMEPRAZOLE [Interacting]
     Active Substance: OMEPRAZOLE
     Dosage: 20 MG, BID (40 MG PER DAY)
  2. LEVODROPROPIZINE [Suspect]
     Active Substance: LEVODROPROPIZINE
     Indication: Antitussive therapy
  3. CLARITHROMYCIN [Interacting]
     Active Substance: CLARITHROMYCIN
     Indication: Cough
     Dosage: 500 MG, BID
     Route: 048
  4. CLARITHROMYCIN [Interacting]
     Active Substance: CLARITHROMYCIN
     Dosage: 500 MG, BID
     Route: 048
  5. CODEINE PHOSPHATE\SULFOGAIACOL [Interacting]
     Active Substance: CODEINE PHOSPHATE\SULFOGAIACOL
     Dosage: 3 X 1 TABLET; 1 DF = 1 TABLET
  6. VALSARTAN [Concomitant]
     Active Substance: VALSARTAN
     Indication: Hypertension
     Dosage: UNK
  7. VALSARTAN [Concomitant]
     Active Substance: VALSARTAN
     Dosage: UNK
  8. VALSARTAN [Concomitant]
     Active Substance: VALSARTAN
     Dosage: UNK
  9. VORTIOXETINE [Concomitant]
     Active Substance: VORTIOXETINE
     Indication: Depression
     Dosage: UNK
  10. VORTIOXETINE [Concomitant]
     Active Substance: VORTIOXETINE
     Dosage: UNK
  11. VORTIOXETINE [Concomitant]
     Active Substance: VORTIOXETINE
     Dosage: UNK
  12. AMOXICILLIN\CLAVULANATE POTASSIUM [Interacting]
     Active Substance: AMOXICILLIN\CLAVULANATE POTASSIUM
     Indication: Product used for unknown indication
     Dosage: 1000 MG, BID
  13. DEXTROMETHORPHAN HYDROBROMIDE [Interacting]
     Active Substance: DEXTROMETHORPHAN HYDROBROMIDE
     Indication: Cough
     Dosage: 30 MG, TID
     Route: 048
  14. DEXTROMETHORPHAN HYDROBROMIDE [Interacting]
     Active Substance: DEXTROMETHORPHAN HYDROBROMIDE
     Indication: Antitussive therapy
  15. METHYLPREDNISOLONE [Interacting]
     Active Substance: METHYLPREDNISOLONE
     Dosage: 8 MG, BID
  16. ESCITALOPRAM OXALATE [Interacting]
     Active Substance: ESCITALOPRAM OXALATE
     Indication: Depression
     Dosage: 10 MG
  17. AMLODIPINE\PERINDOPRIL [Interacting]
     Active Substance: AMLODIPINE\PERINDOPRIL
     Indication: Insomnia
     Dosage: 10 MG OF PERINDOPRIL AND 10 MG OF AMLODIPINE
  18. AMLODIPINE\PERINDOPRIL [Interacting]
     Active Substance: AMLODIPINE\PERINDOPRIL
     Indication: Affective disorder
  19. AMLODIPINE\PERINDOPRIL [Interacting]
     Active Substance: AMLODIPINE\PERINDOPRIL
     Indication: Hypertension
  20. AMLODIPINE\PERINDOPRIL [Suspect]
     Active Substance: AMLODIPINE\PERINDOPRIL
     Indication: Affective disorder
     Dosage: 10 MG OF PERINDOPRIL AND 10 MG OF AMLODIPINE
  21. AMLODIPINE\PERINDOPRIL [Suspect]
     Active Substance: AMLODIPINE\PERINDOPRIL
     Indication: Insomnia
  22. AMLODIPINE\PERINDOPRIL [Suspect]
     Active Substance: AMLODIPINE\PERINDOPRIL
     Indication: Hypertension

REACTIONS (12)
  - Hyperhidrosis [Recovered/Resolved]
  - General physical health deterioration [Unknown]
  - Drug level increased [Unknown]
  - Serotonin syndrome [Recovered/Resolved]
  - Condition aggravated [Unknown]
  - Cough [Recovered/Resolved]
  - Poor quality sleep [Unknown]
  - Joint swelling [Recovered/Resolved]
  - Cough [Recovered/Resolved]
  - Irritability [Unknown]
  - Constipation [Unknown]
  - Sleep disorder [Unknown]

NARRATIVE: CASE EVENT DATE: 20210101
